FAERS Safety Report 25572411 (Version 2)
Quarter: 2025Q3

REPORT INFORMATION
  Report Type: Report from Study
  Country: JP (occurrence: JP)
  Receive Date: 20250717
  Receipt Date: 20250812
  Transmission Date: 20251021
  Serious: Yes (Life-Threatening)
  Sender: PFIZER
  Company Number: JP-PFIZER INC-PV202500084527

PATIENT
  Age: 77 Year
  Sex: Female
  Weight: 43.6 kg

DRUGS (8)
  1. ELRANATAMAB [Suspect]
     Active Substance: ELRANATAMAB
     Indication: Plasma cell myeloma
     Dosage: 76 MG, WEEKLY
     Dates: start: 20240903, end: 20250207
  2. SULFAMETHOXAZOLE\TRIMETHOPRIM [Concomitant]
     Active Substance: SULFAMETHOXAZOLE\TRIMETHOPRIM
     Indication: Drug therapy
     Dosage: 1 DF, 1X/DAY AFTER BREAKFAST EVERY SATURDAY
     Route: 048
  3. VALACYCLOVIR HYDROCHLORIDE [Concomitant]
     Active Substance: VALACYCLOVIR HYDROCHLORIDE
     Indication: Drug therapy
     Dosage: 1 DF, 1X/DAY AFTER BREAKFAST ON MONDAY, WEDNESDAY, AND FRIDAY
     Route: 048
  4. METHYLCOBALAMIN [Concomitant]
     Active Substance: METHYLCOBALAMIN
     Indication: Drug therapy
     Dosage: 1 DF, 1X/DAY AFTER BREAKFAST
     Route: 048
  5. RABEPRAZOLE SODIUM [Concomitant]
     Active Substance: RABEPRAZOLE SODIUM
     Indication: Drug therapy
     Dosage: 1 DF, 1X/DAY AFTER BREAKFAST
     Route: 048
  6. ALFACALCIDOL [Concomitant]
     Active Substance: ALFACALCIDOL
     Indication: Drug therapy
     Dosage: 1 DF, 1X/DAY AFTER BREAKFAST
     Route: 048
  7. LEVOFLOXACIN [Concomitant]
     Active Substance: LEVOFLOXACIN
     Indication: Drug therapy
     Dosage: 1 DF, 1X/DAY AFTER BREAKFAST
     Route: 048
  8. CALONAL [Concomitant]
     Active Substance: ACETAMINOPHEN
     Indication: Drug therapy
     Dosage: 3 DF, 3X/DAY AFTER BREAKFAST, LUNCH, AND DINNER
     Route: 048

REACTIONS (4)
  - Achromobacter infection [Recovered/Resolved]
  - Psoas abscess [Recovered/Resolved]
  - Arthritis bacterial [Recovered/Resolved]
  - Sepsis [Recovered/Resolved]

NARRATIVE: CASE EVENT DATE: 20250221
